FAERS Safety Report 7644057-3 (Version None)
Quarter: 2011Q3

REPORT INFORMATION
  Report Type: 
  Country: None (occurrence: None)
  Receive Date: 20110729
  Receipt Date: 20110719
  Transmission Date: 20111222
  Serious: Yes (Other)
  Sender: FDA-Public Use
  Company Number: LT-JNJFOC-20110707376

PATIENT
  Age: 28 Year
  Sex: Female

DRUGS (2)
  1. ESTRADIOL VALERATE/DIENOGEST [Interacting]
     Indication: CONTRACEPTION
     Route: 048
  2. VERMOX [Suspect]
     Indication: INFECTION
     Route: 048
     Dates: start: 20110718, end: 20110718

REACTIONS (8)
  - THROAT TIGHTNESS [None]
  - HYPOAESTHESIA [None]
  - DRUG INTERACTION [None]
  - INTENTIONAL DRUG MISUSE [None]
  - DYSPNOEA [None]
  - NASAL CONGESTION [None]
  - EAR CONGESTION [None]
  - ASTHENIA [None]
